FAERS Safety Report 4968606-9 (Version None)
Quarter: 2006Q2

REPORT INFORMATION
  Report Type: 
  Country: None (occurrence: None)
  Receive Date: 20060405
  Receipt Date: 20060322
  Transmission Date: 20061013
  Serious: Yes (Life-Threatening, Hospitalization)
  Sender: FDA-Public Use
  Company Number: 012196

PATIENT
  Age: 58 Year
  Sex: Male

DRUGS (3)
  1. VERAPAMIL [Suspect]
     Indication: ESSENTIAL HYPERTENSION
  2. DIGOXIN [Concomitant]
  3. WARFARIN SODIUM [Concomitant]

REACTIONS (11)
  - ARRHYTHMIA [None]
  - BLOOD CREATININE INCREASED [None]
  - BLOOD PRESSURE IMMEASURABLE [None]
  - CARDIOGENIC SHOCK [None]
  - CONFUSIONAL STATE [None]
  - CYANOSIS [None]
  - GENERAL PHYSICAL HEALTH DETERIORATION [None]
  - HYPERURICAEMIA [None]
  - OXYGEN SATURATION DECREASED [None]
  - PULSE ABSENT [None]
  - THERAPY NON-RESPONDER [None]
